FAERS Safety Report 7967229-7 (Version None)
Quarter: 2011Q4

REPORT INFORMATION
  Report Type: 
  Country: None (occurrence: None)
  Receive Date: 20111209
  Receipt Date: 20111202
  Transmission Date: 20120403
  Serious: Yes (Hospitalization)
  Sender: FDA-Public Use
  Company Number: GB-UCBSA-046987

PATIENT
  Sex: Male

DRUGS (2)
  1. VIMPAT [Suspect]
     Indication: BRAIN NEOPLASM
  2. ANTIEPILEPTICS [Concomitant]
     Indication: EPILEPSY

REACTIONS (1)
  - CONVULSION [None]
